FAERS Safety Report 8858788 (Version 1)
Quarter: 2012Q4

REPORT INFORMATION
  Report Type: 
  Country: US (occurrence: US)
  Receive Date: 20121024
  Receipt Date: 20121024
  Transmission Date: 20130627
  Serious: No
  Sender: FDA-Public Use
  Company Number: US-PFIZER INC-2012262072

PATIENT

DRUGS (2)
  1. RAPAMUNE [Suspect]
     Dosage: 4 mg, daily
  2. GLEEVEC [Suspect]
     Dosage: 400 mg, daily

REACTIONS (2)
  - Fluid retention [Unknown]
  - Oedema peripheral [Unknown]
